FAERS Safety Report 10651009 (Version 1)
Quarter: 2014Q4

REPORT INFORMATION
  Report Type: Spontaneous
  Country: US (occurrence: US)
  Receive Date: 20141215
  Receipt Date: 20141215
  Transmission Date: 20150529
  Serious: Yes (Other)
  Sender: FDA-Public Use
  Company Number: US-BRISTOL-MYERS SQUIBB COMPANY-21680558

PATIENT
  Age: 64 Year
  Sex: Female
  Weight: 102.4 kg

DRUGS (1)
  1. BYDUREON [Suspect]
     Active Substance: EXENATIDE
     Indication: DIABETES MELLITUS
     Route: 065

REACTIONS (4)
  - Injection site extravasation [Unknown]
  - Diarrhoea [Not Recovered/Not Resolved]
  - Injection site haemorrhage [Unknown]
  - Migraine with aura [Unknown]

NARRATIVE: CASE EVENT DATE: 201402
